FAERS Safety Report 6092798-4 (Version None)
Quarter: 2009Q1

REPORT INFORMATION
  Report Type: 
  Country: None (occurrence: None)
  Receive Date: 20090225
  Receipt Date: 20090212
  Transmission Date: 20090719
  Serious: Yes (Other)
  Sender: FDA-Public Use
  Company Number: JP-ROCHE-612168

PATIENT
  Sex: Female
  Weight: 14 kg

DRUGS (4)
  1. TAMIFLU [Suspect]
     Indication: INFLUENZA
     Dosage: DRUG REPORTED: TAMIFLU DRY SYRUP
     Route: 048
     Dates: start: 20090124, end: 20090124
  2. VENTOLIN [Concomitant]
     Route: 048
     Dates: start: 20090124
  3. MUCODYNE [Concomitant]
     Route: 048
     Dates: start: 20090124
  4. PULSMARIN A [Concomitant]
     Route: 048
     Dates: start: 20090124

REACTIONS (1)
  - ABNORMAL BEHAVIOUR [None]
